FAERS Safety Report 9426082 (Version 3)
Quarter: 2013Q3

REPORT INFORMATION
  Report Type: Spontaneous
  Country: ES (occurrence: ES)
  Receive Date: 20130730
  Receipt Date: 20130927
  Transmission Date: 20140515
  Serious: Yes (Hospitalization)
  Sender: FDA-Public Use
  Company Number: ES-BIOGENIDEC-2013BI068858

PATIENT
  Sex: Female

DRUGS (3)
  1. TYSABRI [Suspect]
     Indication: MULTIPLE SCLEROSIS
     Route: 042
     Dates: start: 200903
  2. HIDROFEROL [Concomitant]
     Indication: VITAMIN D DEFICIENCY
  3. TOVIAZ [Concomitant]
     Indication: URINARY TRACT DISORDER

REACTIONS (4)
  - Herpes zoster infection neurological [Unknown]
  - Ataxia [Unknown]
  - Vertigo [Unknown]
  - Multiple sclerosis relapse [Unknown]
